FAERS Safety Report 4693582-6 (Version None)
Quarter: 2005Q2

REPORT INFORMATION
  Report Type: 
  Country: None (occurrence: None)
  Receive Date: 20050617
  Receipt Date: 20050513
  Transmission Date: 20051028
  Serious: Yes (Other)
  Sender: FDA-Public Use
  Company Number: JP-ROCHE-404749

PATIENT
  Age: 13 Year
  Sex: Male

DRUGS (2)
  1. TAMIFLU [Suspect]
     Route: 048
     Dates: start: 20050227, end: 20050302
  2. UNSPECIFIED MEDICATION [Concomitant]
     Dosage: DRUG NAME REPORTED AS SHOUSAIKOTOU(SHOUSAIKOTOU) AND DOSE FORM REPORTED AS ORAL FORMULATION NOT OTH+
     Route: 048

REACTIONS (2)
  - DIARRHOEA [None]
  - HYPOTHERMIA [None]
